FAERS Safety Report 9290895 (Version 2)
Quarter: 2013Q2

REPORT INFORMATION
  Report Type: Spontaneous
  Country: TW (occurrence: TW)
  Receive Date: 20130515
  Receipt Date: 20130522
  Transmission Date: 20140414
  Serious: Yes (Hospitalization)
  Sender: FDA-Public Use
  Company Number: TW-PFIZER INC-2013147013

PATIENT
  Sex: Female

DRUGS (3)
  1. LYRICA [Suspect]
     Indication: FIBROMYALGIA
     Dosage: 2 CAPSULE, QD
     Route: 048
     Dates: start: 20121018
  2. XANAX [Concomitant]
  3. ARCOXIA [Concomitant]

REACTIONS (2)
  - Fall [Not Recovered/Not Resolved]
  - Hypotension [Unknown]
